FAERS Safety Report 8179993-5 (Version None)
Quarter: 2012Q1

REPORT INFORMATION
  Report Type: 
  Country: None (occurrence: None)
  Receive Date: 20120302
  Receipt Date: 20120222
  Transmission Date: 20120608
  Serious: Yes (Other)
  Sender: FDA-Public Use
  Company Number: MX-SANOFI-AVENTIS-2012SA012156

PATIENT
  Age: 78 Year
  Sex: Female
  Weight: 65 kg

DRUGS (7)
  1. PROPRANOLOL [Concomitant]
     Dosage: DOSE:0.5 UNIT(S)
     Route: 048
  2. PLAVIX [Suspect]
     Indication: THROMBOSIS PROPHYLAXIS
     Route: 048
     Dates: start: 20080101
  3. ALL OTHER THERAPEUTIC PRODUCTS [Concomitant]
     Indication: RHEUMATOID ARTHRITIS
  4. PLAVIX [Suspect]
     Route: 048
     Dates: start: 20080101
  5. ASPIRIN [Concomitant]
     Dates: start: 20080101
  6. GINGKO BILOBA [Concomitant]
     Indication: FLUID RETENTION
     Dosage: 1 ENVELOP DAILY
     Route: 048
     Dates: start: 19950101
  7. ASPIRIN [Concomitant]
     Indication: THROMBOSIS PROPHYLAXIS
     Dates: start: 20080101

REACTIONS (3)
  - VARICOSE ULCERATION [None]
  - SYNCOPE [None]
  - VARICOSE VEIN [None]
